FAERS Safety Report 22267932 (Version 1)
Quarter: 2023Q2

REPORT INFORMATION
  Report Type: Spontaneous
  Country: FR (occurrence: FR)
  Receive Date: 20230430
  Receipt Date: 20230430
  Transmission Date: 20230722
  Serious: Yes (Death)
  Sender: FDA-Public Use
  Company Number: None

PATIENT
  Age: 71 Year
  Sex: Male

DRUGS (1)
  1. CEFTRIAXONE [Suspect]
     Active Substance: CEFTRIAXONE
     Indication: Bronchitis
     Dosage: 1 DOSAGE FORM, QD
     Route: 030
     Dates: start: 20230412

REACTIONS (1)
  - Anaphylactoid shock [Fatal]

NARRATIVE: CASE EVENT DATE: 20230412
